FAERS Safety Report 10446659 (Version 1)
Quarter: 2014Q3

REPORT INFORMATION
  Report Type: Spontaneous
  Country: GB (occurrence: GB)
  Receive Date: 20140911
  Receipt Date: 20140911
  Transmission Date: 20150326
  Serious: Yes (Other)
  Sender: FDA-Public Use
  Company Number: GB-TEVA-506198ISR

PATIENT
  Age: 78 Year
  Sex: Female

DRUGS (14)
  1. FUROSEMIDE. [Suspect]
     Active Substance: FUROSEMIDE
     Dosage: 20 MILLIGRAM DAILY; EVERY MORNING
     Route: 048
     Dates: end: 20110206
  2. FERROUS FUMARATE [Concomitant]
     Active Substance: FERROUS FUMARATE
     Dosage: 420 MILLIGRAM DAILY;
  3. OMEPRAZOLE. [Concomitant]
     Active Substance: OMEPRAZOLE
     Dosage: 40 MILLIGRAM DAILY; EVERY MORNING
  4. QUININE SULPHATE [Concomitant]
     Active Substance: QUININE SULFATE
     Dosage: 300 MILLIGRAM DAILY; AT NIGHT
  5. ISOSORBIDE MONONITRATE. [Concomitant]
     Active Substance: ISOSORBIDE MONONITRATE
     Dosage: 20 MILLIGRAM DAILY;
  6. ATORVASTATIN [Concomitant]
     Active Substance: ATORVASTATIN
     Dosage: 40 MILLIGRAM DAILY; AT NIGHT
  7. MST CONTINUS [Concomitant]
     Active Substance: MORPHINE SULFATE
     Dosage: 40 MILLIGRAM DAILY; REDUCED TO 10MG
  8. AMLODIPINE [Concomitant]
     Active Substance: AMLODIPINE BESYLATE
     Dosage: 5 MILLIGRAM DAILY; EVERY MORNING
  9. SERETIDE [Concomitant]
     Active Substance: FLUTICASONE FUROATE\SALMETEROL XINAFOATE
     Dosage: 4 DOSAGE FORMS DAILY;
  10. GTN [Concomitant]
     Active Substance: NITROGLYCERIN
     Dosage: AS REQUIRED
  11. ASPIRIN. [Concomitant]
     Active Substance: ASPIRIN
     Dosage: 75 MILLIGRAM DAILY; EVERY MORNING
  12. RANOLAZINE [Concomitant]
     Active Substance: RANOLAZINE
     Dosage: 750 MILLIGRAM DAILY;
  13. RAMIPRIL. [Suspect]
     Active Substance: RAMIPRIL
     Dosage: 1.25 MILLIGRAM DAILY;
     Route: 048
     Dates: end: 20110206
  14. TEMAZEPAM. [Concomitant]
     Active Substance: TEMAZEPAM
     Dosage: 20 MILLIGRAM DAILY; AT NIGHT

REACTIONS (8)
  - Dyspnoea [Recovered/Resolved]
  - Dehydration [Unknown]
  - Decreased appetite [Recovered/Resolved]
  - Cough [Recovered/Resolved]
  - Renal impairment [Recovered/Resolved]
  - Lower respiratory tract infection [Recovered/Resolved]
  - Abdominal pain [Recovered/Resolved]
  - Malaise [Recovered/Resolved]

NARRATIVE: CASE EVENT DATE: 20110206
